FAERS Safety Report 7722075-4 (Version None)
Quarter: 2011Q3

REPORT INFORMATION
  Report Type: 
  Country: None (occurrence: None)
  Receive Date: 20110831
  Receipt Date: 20110822
  Transmission Date: 20111222
  Serious: Yes (Other)
  Sender: FDA-Public Use
  Company Number: BR-ASTRAZENECA-2011SE50478

PATIENT
  Age: 12156 Day
  Sex: Female
  Weight: 74.9 kg

DRUGS (5)
  1. LUMI [Concomitant]
     Indication: ORAL CONTRACEPTION
     Route: 048
  2. GYNOPAC [Concomitant]
     Route: 048
     Dates: start: 20110819
  3. SYMBICORT [Suspect]
     Indication: ASTHMA
     Dosage: 160/4.5MCG BID
     Route: 055
     Dates: start: 20110819, end: 20110819
  4. SIBUTRAMIN [Concomitant]
     Route: 048
     Dates: start: 20110601
  5. SYMBICORT [Suspect]
     Dosage: 160/4.5MCG OD
     Route: 055
     Dates: start: 20110820, end: 20110820

REACTIONS (5)
  - DRUG DOSE OMISSION [None]
  - DYSPNOEA [None]
  - URTICARIA [None]
  - SWELLING [None]
  - PRURITUS GENERALISED [None]
